FAERS Safety Report 23520932 (Version 1)
Quarter: 2024Q1

REPORT INFORMATION
  Report Type: 
  Country: None (occurrence: None)
  Receive Date: 20240214
  Receipt Date: 20240214
  Transmission Date: 20240410
  Serious: No
  Sender: FDA-Public Use
  Company Number: IT-ROCHE-3499277

PATIENT

DRUGS (15)
  1. TRASTUZUMAB [Suspect]
     Active Substance: TRASTUZUMAB
     Dates: start: 202206, end: 202210
  2. TRASTUZUMAB [Suspect]
     Active Substance: TRASTUZUMAB
     Dates: start: 202307
  3. PERTUZUMAB [Suspect]
     Active Substance: PERTUZUMAB
     Dates: start: 202206, end: 202210
  4. PERTUZUMAB [Suspect]
     Active Substance: PERTUZUMAB
     Dates: start: 202307
  5. DENOSUMAB [Suspect]
     Active Substance: DENOSUMAB
     Dates: start: 202206, end: 202210
  6. DENOSUMAB [Suspect]
     Active Substance: DENOSUMAB
     Dates: start: 202307
  7. FULVESTRANT [Suspect]
     Active Substance: FULVESTRANT
     Dates: start: 202206, end: 202210
  8. FULVESTRANT [Suspect]
     Active Substance: FULVESTRANT
     Dates: start: 202307
  9. EPIRUBICIN [Concomitant]
     Active Substance: EPIRUBICIN
  10. CYCLOPHOSPHAMIDE [Concomitant]
     Active Substance: CYCLOPHOSPHAMIDE
  11. DOCETAXEL [Concomitant]
     Active Substance: DOCETAXEL\DOCETAXEL ANHYDROUS
  12. LETROZOLE [Concomitant]
     Active Substance: LETROZOLE
  13. RAMIPRIL [Concomitant]
     Active Substance: RAMIPRIL
  14. ATORVASTATIN [Concomitant]
     Active Substance: ATORVASTATIN
  15. PACLITAXEL [Concomitant]
     Active Substance: PACLITAXEL
     Dates: start: 202206, end: 202210

REACTIONS (1)
  - Stress cardiomyopathy [None]
